FAERS Safety Report 13716751 (Version 2)
Quarter: 2017Q3

REPORT INFORMATION
  Report Type: Spontaneous
  Country: US (occurrence: US)
  Receive Date: 20170705
  Receipt Date: 20170830
  Transmission Date: 20171127
  Serious: Yes (Disabling, Other)
  Sender: FDA-Public Use
  Company Number: US-REGENERON PHARMACEUTICALS, INC.-2017-17850

PATIENT

DRUGS (13)
  1. EYLEA [Suspect]
     Active Substance: AFLIBERCEPT
     Indication: RETINAL VEIN OCCLUSION
     Dosage: 2 MG, OS, APPLY MONTLY - 8 WEEKS
     Route: 031
     Dates: start: 20160809, end: 20160809
  2. EYLEA [Suspect]
     Active Substance: AFLIBERCEPT
     Dosage: 2 MG, SINGLE, OS
     Route: 031
     Dates: start: 20170413, end: 20170413
  3. EYLEA [Suspect]
     Active Substance: AFLIBERCEPT
     Dosage: 2 MG, SINGLE, OS, LAST DOSE
     Route: 031
     Dates: start: 20170518, end: 20170518
  4. LEVOTHYROXINE. [Concomitant]
     Active Substance: LEVOTHYROXINE
     Indication: PRODUCT USED FOR UNKNOWN INDICATION
     Dosage: 125 ?G, UNK
  5. EYLEA [Suspect]
     Active Substance: AFLIBERCEPT
     Dosage: 2 MG, SINGLE, OS
     Route: 031
     Dates: start: 20161208, end: 20161208
  6. EYLEA [Suspect]
     Active Substance: AFLIBERCEPT
     Dosage: 2 MG, SINGLE, OS
     Route: 031
     Dates: start: 20161107, end: 20161107
  7. VITAMIN D3 [Concomitant]
     Active Substance: CHOLECALCIFEROL
     Indication: PRODUCT USED FOR UNKNOWN INDICATION
     Dosage: 1000 UNIT
  8. BIOTIN [Concomitant]
     Active Substance: BIOTIN
     Indication: PRODUCT USED FOR UNKNOWN INDICATION
     Dosage: 1 MG, UNK
  9. EYLEA [Suspect]
     Active Substance: AFLIBERCEPT
     Dosage: , OS2 MG, SINGLE
     Route: 031
     Dates: start: 20161007
  10. IBUPROFEN. [Concomitant]
     Active Substance: IBUPROFEN
     Indication: PRODUCT USED FOR UNKNOWN INDICATION
     Dosage: 100 MG, UNK
  11. PREMARIN [Concomitant]
     Active Substance: ESTROGENS, CONJUGATED
     Indication: PRODUCT USED FOR UNKNOWN INDICATION
     Dosage: 0.3 MG, UNK
  12. EYLEA [Suspect]
     Active Substance: AFLIBERCEPT
     Dosage: 2 MG, SINGLE, OS
     Route: 031
     Dates: start: 20170216, end: 20170216
  13. CALTRATE 600+D [Concomitant]
     Indication: PRODUCT USED FOR UNKNOWN INDICATION
     Dosage: 1500 MG - 800 UNIT, UNK

REACTIONS (24)
  - Endophthalmitis [Recovered/Resolved]
  - Vitritis [Recovered/Resolved]
  - Anterior chamber pigmentation [Unknown]
  - Eye inflammation [Unknown]
  - Vision blurred [Not Recovered/Not Resolved]
  - Vitrectomy [Unknown]
  - Ocular hypertension [Unknown]
  - Lenticular opacities [Unknown]
  - Lacrimation increased [Unknown]
  - Vitritis [Recovered/Resolved]
  - Endophthalmitis [Unknown]
  - Blood cholesterol abnormal [Unknown]
  - Nasopharyngitis [Recovering/Resolving]
  - Superficial injury of eye [Unknown]
  - Hypersensitivity [Recovered/Resolved]
  - Uveitis [Recovered/Resolved]
  - Blindness unilateral [Unknown]
  - Nephrolithiasis [Unknown]
  - Retinal exudates [Unknown]
  - Keratic precipitates [Recovering/Resolving]
  - Dry eye [Unknown]
  - Pain [Unknown]
  - Ocular hyperaemia [Unknown]
  - Eye pain [Unknown]

NARRATIVE: CASE EVENT DATE: 201611
